FAERS Safety Report 21554162 (Version 2)
Quarter: 2022Q4

REPORT INFORMATION
  Report Type: Spontaneous
  Country: RU (occurrence: None)
  Receive Date: 20221104
  Receipt Date: 20221114
  Transmission Date: 20230112
  Serious: Yes (Other)
  Sender: FDA-Public Use
  Company Number: RU-ROCHE-3210367

PATIENT
  Age: 59 Year
  Sex: Female

DRUGS (12)
  1. RITUXIMAB [Suspect]
     Active Substance: RITUXIMAB
     Indication: Diffuse large B-cell lymphoma stage III
     Dosage: 18/JUN/2021 TO 23/JUN/2021, THE 1ST CYCLE OF POLYCHEMOTHERAPY WAS PERFORMED?09/JUL/2021 TO 14/JUL/20
     Route: 065
     Dates: start: 20210608, end: 20210623
  2. RITUXIMAB [Suspect]
     Active Substance: RITUXIMAB
     Dosage: 13/JAN/2022 TO 18/JAN/2022, THE 1ST CYCLE OF POLYCHEMOTHERAPY IN THE R-ESHAP REGIMEN WAS PERFORMED.
     Route: 065
     Dates: start: 20220113, end: 20220118
  3. POLATUZUMAB VEDOTIN [Suspect]
     Active Substance: POLATUZUMAB VEDOTIN
     Indication: Diffuse large B-cell lymphoma stage III
     Dosage: 06/JUN/2022 TO 07/JUN/2022, THE 1ST CYCLE?27/JUN/2022 TO 28/JUN/2022 - THE 2ND CYCLE?21/JUL/2022 TO
     Route: 065
     Dates: start: 20220606, end: 20220607
  4. ETOPOSIDE PHOSPHATE [Suspect]
     Active Substance: ETOPOSIDE PHOSPHATE
     Indication: Diffuse large B-cell lymphoma stage III
     Dosage: 18/JUN/2021 TO 23/JUN/2021, THE 1ST CYCLE OF POLYCHEMOTHERAPY WAS PERFORMED?09/JUL/2021 TO 14/JUL/20
     Route: 065
     Dates: start: 20210618, end: 20210623
  5. PREDNISONE [Suspect]
     Active Substance: PREDNISONE
     Indication: Diffuse large B-cell lymphoma stage III
     Dosage: 18/JUN/2021 TO 23/JUN/2021, THE 1ST CYCLE OF POLYCHEMOTHERAPY WAS PERFORMED?09/JUL/2021 TO 14/JUL/20
     Route: 065
     Dates: start: 20210618, end: 20210623
  6. VINCRISTINE SULFATE [Suspect]
     Active Substance: VINCRISTINE SULFATE
     Indication: Diffuse large B-cell lymphoma stage III
     Dosage: 18/JUN/2021 TO 23/JUN/2021, THE 1ST CYCLE OF POLYCHEMOTHERAPY WAS PERFORMED?09/JUL/2021 TO 14/JUL/20
     Route: 065
     Dates: start: 20210618, end: 20210623
  7. CYCLOPHOSPHAMIDE [Suspect]
     Active Substance: CYCLOPHOSPHAMIDE
     Indication: Diffuse large B-cell lymphoma stage III
     Dosage: 18/JUN/2021 TO 23/JUN/2021, THE 1ST CYCLE OF POLYCHEMOTHERAPY WAS PERFORMED?09/JUL/2021 TO 14/JUL/20
     Route: 065
     Dates: start: 20210618, end: 20210623
  8. DOXORUBICIN HYDROCHLORIDE [Suspect]
     Active Substance: DOXORUBICIN HYDROCHLORIDE
     Indication: Diffuse large B-cell lymphoma stage III
     Route: 065
  9. METHYLPREDNISOLONE [Suspect]
     Active Substance: METHYLPREDNISOLONE
     Indication: Diffuse large B-cell lymphoma stage III
     Dosage: 13/JAN/2022 TO 18/JAN/2022, THE 1ST CYCLE OF POLYCHEMOTHERAPY IN THE R-ESHAP REGIMEN WAS PERFORMED.
     Route: 065
     Dates: start: 20220113, end: 20220118
  10. CYTARABINE [Suspect]
     Active Substance: CYTARABINE
     Indication: Diffuse large B-cell lymphoma stage III
     Dosage: 13/JAN/2022 TO 18/JAN/2022, THE 1ST CYCLE OF POLYCHEMOTHERAPY IN THE R-ESHAP REGIMEN WAS PERFORMED.
     Route: 065
     Dates: start: 20220113, end: 20220118
  11. CISPLATIN [Suspect]
     Active Substance: CISPLATIN
     Indication: Diffuse large B-cell lymphoma stage III
     Route: 065
  12. BENDAMUSTINE [Suspect]
     Active Substance: BENDAMUSTINE
     Indication: Diffuse large B-cell lymphoma stage III
     Dosage: 06/JUN/2022 TO 07/JUN/2022, THE 1ST CYCLE?27/JUN/2022 TO 28/JUN/2022 - THE 2ND CYCLE?21/JUL/2022 TO
     Route: 065
     Dates: start: 20220606, end: 20220607

REACTIONS (11)
  - Disease progression [Unknown]
  - Hepatotoxicity [Unknown]
  - Thrombocytopenia [Unknown]
  - Pyelonephritis [Unknown]
  - Wound necrosis [Unknown]
  - Wound infection [Unknown]
  - Bone pain [Unknown]
  - Cyst [Unknown]
  - Anaemia [Unknown]
  - COVID-19 [Unknown]
  - Pyrexia [Unknown]
